FAERS Safety Report 20020324 (Version 1)
Quarter: 2021Q4

REPORT INFORMATION
  Report Type: Spontaneous
  Country: IN (occurrence: IN)
  Receive Date: 20211101
  Receipt Date: 20211101
  Transmission Date: 20220303
  Serious: Yes (Other)
  Sender: FDA-Public Use
  Company Number: IN-LUPIN PHARMACEUTICALS INC.-2021-21213

PATIENT
  Age: 23 Year
  Sex: Female

DRUGS (1)
  1. SILDENAFIL [Suspect]
     Active Substance: SILDENAFIL
     Indication: Pulmonary hypertension
     Dosage: 40 MILLIGRAM, TID, THREE TIMES A DAY
     Route: 065

REACTIONS (2)
  - Exposure during pregnancy [Unknown]
  - Foetal death [Unknown]
